FAERS Safety Report 6825560-2 (Version None)
Quarter: 2010Q3

REPORT INFORMATION
  Report Type: 
  Country: None (occurrence: None)
  Receive Date: 20100708
  Receipt Date: 20071114
  Transmission Date: 20110219
  Serious: No
  Sender: FDA-Public Use
  Company Number: US-PFIZER INC-2006132261

PATIENT
  Sex: Female
  Weight: 79.83 kg

DRUGS (15)
  1. CHANTIX [Suspect]
     Indication: SMOKING CESSATION THERAPY
     Route: 048
     Dates: start: 20061022
  2. SPIRIVA [Concomitant]
  3. ADVAIR DISKUS 100/50 [Concomitant]
  4. PROTONIX [Concomitant]
     Route: 048
  5. LIPITOR [Concomitant]
     Route: 048
  6. WARFARIN SODIUM [Concomitant]
     Route: 048
  7. POTASSIUM CHLORIDE [Concomitant]
     Route: 048
  8. PLAVIX [Concomitant]
     Route: 048
  9. EFFEXOR XR [Concomitant]
     Route: 048
  10. PERPHENAZINE [Concomitant]
     Route: 048
  11. VALSARTAN [Concomitant]
     Route: 048
  12. CLONIDINE [Concomitant]
     Route: 048
  13. COSOPT [Concomitant]
  14. ALPHAGAN [Concomitant]
  15. XALATAN [Concomitant]

REACTIONS (7)
  - BODY TEMPERATURE INCREASED [None]
  - COUGH [None]
  - DYSPNOEA [None]
  - NASAL CONGESTION [None]
  - NASOPHARYNGITIS [None]
  - OEDEMA PERIPHERAL [None]
  - PAIN IN EXTREMITY [None]
